FAERS Safety Report 8174800-9 (Version None)
Quarter: 2012Q1

REPORT INFORMATION
  Report Type: 
  Country: None (occurrence: None)
  Receive Date: 20120229
  Receipt Date: 20120216
  Transmission Date: 20120608
  Serious: Yes (Other)
  Sender: FDA-Public Use
  Company Number: PHHY2012BR008121

PATIENT
  Sex: Male
  Weight: 68 kg

DRUGS (1)
  1. RITALIN LA [Suspect]
     Indication: ATTENTION DEFICIT/HYPERACTIVITY DISORDER
     Dosage: 1 DF, QD
     Route: 048

REACTIONS (20)
  - DISCOMFORT [None]
  - EMOTIONAL DISTRESS [None]
  - ANXIETY [None]
  - FATIGUE [None]
  - ABDOMINAL PAIN [None]
  - SENSATION OF HEAVINESS [None]
  - FEELING ABNORMAL [None]
  - BACK PAIN [None]
  - DISORIENTATION [None]
  - SOMNOLENCE [None]
  - LOSS OF CONSCIOUSNESS [None]
  - TREMOR [None]
  - INSOMNIA [None]
  - NECK PAIN [None]
  - BLOOD PRESSURE INCREASED [None]
  - GASTROINTESTINAL DISORDER [None]
  - BREATH ODOUR [None]
  - PSYCHIATRIC SYMPTOM [None]
  - HEADACHE [None]
  - NAUSEA [None]
